FAERS Safety Report 7176519-X (Version None)
Quarter: 2010Q4

REPORT INFORMATION
  Report Type: 
  Country: None (occurrence: None)
  Receive Date: 20101220
  Receipt Date: 20101217
  Transmission Date: 20110411
  Serious: Yes (Other)
  Sender: FDA-Public Use
  Company Number: BE-PFIZER INC-2010158134

PATIENT
  Age: 43 Year
  Sex: Male
  Weight: 80 kg

DRUGS (2)
  1. FELDENE [Suspect]
     Indication: LABYRINTHITIS
     Dosage: 20 MG, 2X/DAY
     Route: 030
     Dates: start: 20100705, end: 20100705
  2. NOVALGIN [Concomitant]
     Dosage: 1 G, 2X/DAY

REACTIONS (1)
  - DEAFNESS UNILATERAL [None]
